FAERS Safety Report 6192740-1 (Version None)
Quarter: 2009Q2

REPORT INFORMATION
  Report Type: 
  Country: None (occurrence: None)
  Receive Date: 20090518
  Receipt Date: 20090511
  Transmission Date: 20091009
  Serious: Yes (Death)
  Sender: FDA-Public Use
  Company Number: US-AMGEN-STX346400

PATIENT
  Sex: Male

DRUGS (11)
  1. SENSIPAR [Suspect]
     Indication: HYPERPARATHYROIDISM SECONDARY
  2. RENAGEL [Concomitant]
  3. ACIPHEX [Concomitant]
  4. FAMOTIDINE [Concomitant]
  5. UNSPECIFIED NUTRITIONAL SUPPLEMENT [Concomitant]
  6. DOCUSATE [Concomitant]
  7. ASPIRIN [Concomitant]
  8. SINGULAIR [Concomitant]
  9. HUMALOG [Concomitant]
  10. LANTUS [Concomitant]
  11. ALPHAGAN [Concomitant]

REACTIONS (1)
  - DEATH [None]
